FAERS Safety Report 20451252 (Version 2)
Quarter: 2022Q1

REPORT INFORMATION
  Report Type: Spontaneous
  Country: JP (occurrence: JP)
  Receive Date: 20220209
  Receipt Date: 20220312
  Transmission Date: 20220423
  Serious: Yes (Hospitalization, Other)
  Sender: FDA-Public Use
  Company Number: JP-CELGENE-JPN-20210606726

PATIENT
  Age: 71 Year
  Sex: Male
  Weight: 68 kg

DRUGS (7)
  1. REVLIMID [Suspect]
     Active Substance: LENALIDOMIDE
     Indication: Adult T-cell lymphoma/leukaemia
     Dosage: 10 MILLIGRAM
     Route: 048
     Dates: start: 20210507, end: 20210521
  2. REVLIMID [Suspect]
     Active Substance: LENALIDOMIDE
     Dosage: 5 MILLIGRAM
     Route: 048
     Dates: start: 20210607, end: 20210610
  3. DEXAMETHASONE [Suspect]
     Active Substance: DEXAMETHASONE
     Indication: Product used for unknown indication
     Dosage: UNKNOWN
     Route: 048
     Dates: start: 20210607
  4. POTELIGEO [Suspect]
     Active Substance: MOGAMULIZUMAB-KPKC
     Indication: Adult T-cell lymphoma/leukaemia
     Route: 041
     Dates: start: 20210303, end: 20210421
  5. RABEPRAZOLE [Concomitant]
     Active Substance: RABEPRAZOLE
     Indication: Prophylaxis
     Dosage: 10 MILLIGRAM
     Route: 048
     Dates: start: 20200731
  6. SULFAMETHOXAZOLE\TRIMETHOPRIM [Concomitant]
     Active Substance: SULFAMETHOXAZOLE\TRIMETHOPRIM
     Indication: Prophylaxis
     Route: 048
     Dates: start: 20200731
  7. CALONAL [Concomitant]
     Active Substance: ACETAMINOPHEN
     Indication: Arthralgia
     Dosage: 600 MILLIGRAM
     Route: 048
     Dates: start: 20200731

REACTIONS (6)
  - Drug eruption [Recovering/Resolving]
  - Sinus node dysfunction [Unknown]
  - Hypocalcaemia [Unknown]
  - Drug eruption [Recovering/Resolving]
  - Diarrhoea [Recovering/Resolving]
  - Constipation [Recovering/Resolving]

NARRATIVE: CASE EVENT DATE: 20210514
